FAERS Safety Report 22394574 (Version 1)
Quarter: 2023Q2

REPORT INFORMATION
  Report Type: Spontaneous
  Country: AR (occurrence: AR)
  Receive Date: 20230601
  Receipt Date: 20230601
  Transmission Date: 20230721
  Serious: Yes (Other)
  Sender: FDA-Public Use
  Company Number: AR-002147023-NVSC2023AR118378

PATIENT

DRUGS (1)
  1. RUXOLITINIB [Suspect]
     Active Substance: RUXOLITINIB
     Indication: Chronic leukaemia
     Dosage: 15 MG, BID (60 TABLETS)
     Route: 065

REACTIONS (2)
  - Haemorrhagic ascites [Not Recovered/Not Resolved]
  - Product use in unapproved indication [Unknown]
